FAERS Safety Report 4565017-5 (Version None)
Quarter: 2005Q1

REPORT INFORMATION
  Report Type: 
  Country: None (occurrence: None)
  Receive Date: 20050126
  Receipt Date: 20050117
  Transmission Date: 20050727
  Serious: Yes (Death)
  Sender: FDA-Public Use
  Company Number: 2005016149

PATIENT
  Age: 90 Year
  Sex: Female

DRUGS (11)
  1. SOLU-MEDROL [Suspect]
     Indication: ILL-DEFINED DISORDER
     Dosage: 40 MG (40 MG, DAILY), INTRAVENOUS
     Route: 042
     Dates: start: 20041031, end: 20041103
  2. EFFEXOR [Suspect]
     Indication: ILL-DEFINED DISORDER
  3. PARACETAMOL (PARACETAMOL) [Suspect]
     Indication: ILL-DEFINED DISORDER
     Dosage: INTRAVENOUS
     Route: 042
     Dates: start: 20041031, end: 20041101
  4. FLUINDIONE (FLUINDIONE) [Suspect]
     Indication: ILL-DEFINED DISORDER
     Dosage: 5 MG (20 MG, DAILY), ORAL
     Route: 048
     Dates: start: 20041007, end: 20041103
  5. OMEPRAZOLE [Suspect]
     Indication: ILL-DEFINED DISORDER
     Dosage: 20 MG (20 MG, DAILY), ORAL
     Route: 048
     Dates: start: 20041031, end: 20041103
  6. OFLOXACIN [Suspect]
     Indication: ILL-DEFINED DISORDER
     Dosage: 200 MG (MG, DAILY), INTRAVENOUS
     Route: 042
     Dates: start: 20041031, end: 20041110
  7. LORAZEPAM [Concomitant]
  8. ACETYLSALICYLIC ACID SRT [Concomitant]
  9. NITROGLYCERIN [Concomitant]
  10. TIAPRIDE           (TIAPRIDE) [Concomitant]
  11. CLAVULANIC ACID         (CLAVULANIC ACID) [Concomitant]

REACTIONS (14)
  - BLOOD ALBUMIN DECREASED [None]
  - BRONCHIAL INFECTION [None]
  - DEEP VEIN THROMBOSIS [None]
  - DEHYDRATION [None]
  - FEMUR FRACTURE [None]
  - HAEMATEMESIS [None]
  - INFECTION [None]
  - INTERNATIONAL NORMALISED RATIO INCREASED [None]
  - MALNUTRITION [None]
  - MELAENA [None]
  - PULMONARY EMBOLISM [None]
  - PULMONARY OEDEMA [None]
  - RESPIRATORY FAILURE [None]
  - SUPERINFECTION [None]
